FAERS Safety Report 12441246 (Version 1)
Quarter: 2016Q2

REPORT INFORMATION
  Report Type: Spontaneous
  Country: IT (occurrence: IT)
  Receive Date: 20160607
  Receipt Date: 20160607
  Transmission Date: 20160815
  Serious: Yes (Other)
  Sender: FDA-Public Use
  Company Number: IT-ACCORD-041161

PATIENT
  Age: 67 Year
  Sex: Female

DRUGS (6)
  1. FOSAVANCE [Concomitant]
     Active Substance: ALENDRONATE SODIUM\CHOLECALCIFEROL
  2. SIMVASTATIN. [Concomitant]
     Active Substance: SIMVASTATIN
  3. METHOTREXATE [Suspect]
     Active Substance: METHOTREXATE
     Indication: RHEUMATOID ARTHRITIS
     Route: 030
     Dates: start: 20150227, end: 20160506
  4. FOLINA [Concomitant]
     Active Substance: FOLIC ACID
  5. IDEOS [Concomitant]
     Active Substance: CALCIUM CARBONATE\CHOLECALCIFEROL
  6. SALAZOPYRIN EN [Concomitant]
     Active Substance: SULFASALAZINE

REACTIONS (1)
  - Pseudomonas bronchitis [Recovering/Resolving]

NARRATIVE: CASE EVENT DATE: 20160506
